FAERS Safety Report 17036859 (Version 1)
Quarter: 2019Q4

REPORT INFORMATION
  Report Type: Spontaneous
  Country: SG (occurrence: SG)
  Receive Date: 20191115
  Receipt Date: 20191115
  Transmission Date: 20200122
  Serious: Yes (Other)
  Sender: FDA-Public Use
  Company Number: NVSC2019SG034328

PATIENT
  Age: 46 Year
  Sex: Female

DRUGS (6)
  1. DEXAMETHASONE. [Suspect]
     Active Substance: DEXAMETHASONE
     Indication: CENTRAL NERVOUS SYSTEM LYMPHOMA
     Dosage: UNK
     Route: 065
  2. METHOTREXATE. [Suspect]
     Active Substance: METHOTREXATE
     Dosage: 2.5 MG/M2
     Route: 065
  3. RITUXIMAB. [Suspect]
     Active Substance: RITUXIMAB
     Indication: CENTRAL NERVOUS SYSTEM LYMPHOMA
     Dosage: UNK
     Route: 042
  4. METHOTREXATE. [Suspect]
     Active Substance: METHOTREXATE
     Dosage: 12 MG (AT WEEKS 7 AND 9)
     Route: 037
  5. METHOTREXATE. [Suspect]
     Active Substance: METHOTREXATE
     Indication: CENTRAL NERVOUS SYSTEM LYMPHOMA
     Dosage: 3.5 MG/M2 (OVER 3 HOUR)
     Route: 041
  6. FOLINIC ACID [Suspect]
     Active Substance: LEUCOVORIN
     Indication: CENTRAL NERVOUS SYSTEM LYMPHOMA
     Dosage: 30 MG (6 HOURLY WAS GIVEN 24 H)
     Route: 042

REACTIONS (6)
  - Neurotoxicity [Unknown]
  - Tonic clonic movements [Recovered/Resolved]
  - Product use in unapproved indication [Unknown]
  - Focal dyscognitive seizures [Recovered/Resolved]
  - Choreoathetosis [Unknown]
  - Encephalopathy [Unknown]
